FAERS Safety Report 24528553 (Version 1)
Quarter: 2024Q4

REPORT INFORMATION
  Report Type: Spontaneous
  Country: US (occurrence: US)
  Receive Date: 20241021
  Receipt Date: 20241021
  Transmission Date: 20250115
  Serious: Yes (Life-Threatening, Hospitalization, Other)
  Sender: Long Grove Pharmaceuticals
  Company Number: US-Long Grove-000081

PATIENT
  Age: 40 Year
  Sex: Female

DRUGS (1)
  1. METHADONE [Suspect]
     Active Substance: METHADONE HYDROCHLORIDE
     Indication: Drug use disorder
     Dosage: (70 MG DAILY) FOR 20-PLUS YEARS

REACTIONS (8)
  - Cardiac arrest [Recovered/Resolved]
  - Hypokalaemia [Recovered/Resolved]
  - Torsade de pointes [Unknown]
  - Agitation [Recovering/Resolving]
  - Confusional state [Recovering/Resolving]
  - Hallucination [Recovering/Resolving]
  - Withdrawal syndrome [Recovering/Resolving]
  - Ventricular fibrillation [Unknown]
